FAERS Safety Report 14947603 (Version 5)
Quarter: 2019Q3

REPORT INFORMATION
  Report Type: Spontaneous
  Country: JP (occurrence: JP)
  Receive Date: 20180529
  Receipt Date: 20190913
  Transmission Date: 20191004
  Serious: Yes (Other)
  Sender: FDA-Public Use
  Company Number: JP-ALLERGAN-1826629US

PATIENT
  Sex: Male

DRUGS (7)
  1. SANCOBA [Concomitant]
     Active Substance: CYANOCOBALAMIN
     Indication: ASTHENOPIA
     Dosage: UNK, TID
     Route: 047
     Dates: start: 201508, end: 201702
  2. CYANOCOBALAMIN. [Concomitant]
     Active Substance: CYANOCOBALAMIN
     Dosage: UNK
     Route: 047
  3. ALPHAGAN P [Suspect]
     Active Substance: BRIMONIDINE TARTRATE
     Indication: OPEN ANGLE GLAUCOMA
     Dosage: UNK, BID
     Route: 047
     Dates: start: 201508, end: 20180117
  4. LUMIGAN [Interacting]
     Active Substance: BIMATOPROST
     Indication: GLAUCOMA DRUG THERAPY
     Dosage: UNK, QD
     Route: 047
     Dates: start: 201702
  5. XALATAN [Concomitant]
     Active Substance: LATANOPROST
     Indication: GLAUCOMA DRUG THERAPY
     Dosage: UNK, QD
     Route: 047
     Dates: start: 201507, end: 201702
  6. COSOPT [Interacting]
     Active Substance: DORZOLAMIDE HYDROCHLORIDE\TIMOLOL MALEATE
     Indication: GLAUCOMA DRUG THERAPY
     Dosage: UNK, BID
     Route: 047
     Dates: start: 201508
  7. MICARDIS [Concomitant]
     Active Substance: TELMISARTAN
     Dosage: UNK
     Dates: start: 20170529

REACTIONS (8)
  - Corneal infiltrates [Unknown]
  - Corneal neovascularisation [Recovering/Resolving]
  - Keratitis interstitial [Unknown]
  - Drug interaction [Recovered/Resolved]
  - Hypersensitivity [Recovered/Resolved]
  - Corneal opacity [Recovered/Resolved with Sequelae]
  - Conjunctivitis [Unknown]
  - Conjunctival disorder [Unknown]

NARRATIVE: CASE EVENT DATE: 20180117
